FAERS Safety Report 6271309-4 (Version None)
Quarter: 2009Q3

REPORT INFORMATION
  Report Type: 
  Country: None (occurrence: None)
  Receive Date: 20090717
  Receipt Date: 20090708
  Transmission Date: 20100115
  Serious: Yes (Other)
  Sender: FDA-Public Use
  Company Number: US-BAYER-200918474NA

PATIENT
  Sex: Male

DRUGS (5)
  1. AVELOX [Suspect]
     Indication: DRUG USE FOR UNKNOWN INDICATION
  2. AVELOX [Suspect]
     Dates: start: 20081101
  3. BENICAN HYDROCHLOROTHIAZIDE [Concomitant]
     Indication: HYPERTENSION
     Dosage: 40/12.5
  4. NEXIUM [Concomitant]
     Indication: GASTROOESOPHAGEAL REFLUX DISEASE
     Dosage: 40
  5. WELLBUTRIN XL [Concomitant]
     Indication: DEPRESSION
     Dosage: 300

REACTIONS (15)
  - ANAPHYLACTIC REACTION [None]
  - CHOKING SENSATION [None]
  - DYSPHONIA [None]
  - DYSPNOEA [None]
  - ERYTHEMA [None]
  - FEELING HOT [None]
  - FLUSHING [None]
  - HEART RATE INCREASED [None]
  - LIP SWELLING [None]
  - OXYGEN SATURATION DECREASED [None]
  - PRESYNCOPE [None]
  - PRURITUS GENERALISED [None]
  - SWELLING FACE [None]
  - SWOLLEN TONGUE [None]
  - TUNNEL VISION [None]
